FAERS Safety Report 8403467-7 (Version None)
Quarter: 2012Q2

REPORT INFORMATION
  Report Type: 
  Country: None (occurrence: None)
  Receive Date: 20120601
  Receipt Date: 20120523
  Transmission Date: 20120825
  Serious: Yes (Hospitalization)
  Sender: FDA-Public Use
  Company Number: US-VERTEX PHARMACEUTICALS INC.-AE-2012-007761

PATIENT
  Sex: Male

DRUGS (5)
  1. PEGASYS [Concomitant]
     Indication: HEPATITIS C
     Dates: start: 20111018, end: 20120201
  2. INCIVEK [Suspect]
     Indication: HEPATITIS C
     Route: 048
     Dates: start: 20111018, end: 20120110
  3. PEGASYS [Concomitant]
     Dates: start: 20120201
  4. RIBAVIRIN [Concomitant]
     Indication: HEPATITIS C
     Dates: start: 20111018, end: 20120201
  5. RIBAVIRIN [Concomitant]
     Dates: start: 20120201

REACTIONS (8)
  - MYALGIA [None]
  - RASH [None]
  - BACK PAIN [None]
  - FATIGUE [None]
  - PRURITUS [None]
  - CHOLELITHIASIS [None]
  - PANCREATITIS [None]
  - ANAEMIA [None]
